FAERS Safety Report 9231196 (Version 1)
Quarter: 2013Q2

REPORT INFORMATION
  Report Type: Spontaneous
  Country: CN (occurrence: CN)
  Receive Date: 20130415
  Receipt Date: 20130415
  Transmission Date: 20140414
  Serious: Yes (Death, Hospitalization)
  Sender: FDA-Public Use
  Company Number: PHHY2013CN036180

PATIENT
  Age: 13 Year
  Sex: Female

DRUGS (3)
  1. RIFAMPICIN [Suspect]
     Indication: MENINGITIS TUBERCULOUS
  2. ISONIAZID [Suspect]
     Indication: MENINGITIS TUBERCULOUS
  3. PYRAZINAMIDE SANDOZ [Suspect]
     Indication: MENINGITIS TUBERCULOUS

REACTIONS (7)
  - Cardiac arrest [Fatal]
  - Brain oedema [Fatal]
  - Tuberculoma of central nervous system [Unknown]
  - Cyanosis [Unknown]
  - Hyporeflexia [Unknown]
  - Respiratory disorder [Unknown]
  - Apnoea [Unknown]
